FAERS Safety Report 6136485-2 (Version None)
Quarter: 2009Q1

REPORT INFORMATION
  Report Type: 
  Country: None (occurrence: None)
  Receive Date: 20090217
  Receipt Date: 20080707
  Transmission Date: 20090719
  Serious: No
  Sender: FDA-Public Use
  Company Number: AEUSA200800152

PATIENT
  Age: 50 Year
  Sex: Female
  Weight: 71.6683 kg

DRUGS (4)
  1. PROLASTIN [Suspect]
     Indication: ALPHA-1 ANTI-TRYPSIN DEFICIENCY
     Dosage: 4000 MG; QW; IV
     Route: 042
     Dates: start: 20040101
  2. BETADINE [Suspect]
     Dosage: TOP
     Route: 061
     Dates: start: 20080703, end: 20080703
  3. ACIPHEX [Concomitant]
  4. BETADINE [Concomitant]

REACTIONS (2)
  - BLISTER [None]
  - RASH [None]
